FAERS Safety Report 9457520 (Version 1)
Quarter: 2013Q3

REPORT INFORMATION
  Report Type: Spontaneous
  Country: FI (occurrence: FI)
  Receive Date: 20130814
  Receipt Date: 20130814
  Transmission Date: 20140515
  Serious: No
  Sender: FDA-Public Use
  Company Number: FI-JNJFOC-20130804056

PATIENT
  Age: 91 Year
  Sex: Female

DRUGS (1)
  1. DUROGESIC [Suspect]
     Indication: PAIN
     Route: 062

REACTIONS (2)
  - Inappropriate schedule of drug administration [Unknown]
  - Product quality issue [Unknown]
